FAERS Safety Report 7225203-2 (Version None)
Quarter: 2011Q1

REPORT INFORMATION
  Report Type: 
  Country: None (occurrence: None)
  Receive Date: 20110113
  Receipt Date: 20101222
  Transmission Date: 20110831
  Serious: Yes (Congenital Anomaly)
  Sender: FDA-Public Use
  Company Number: A0905158A

PATIENT
  Sex: Female

DRUGS (1)
  1. PAXIL [Suspect]
     Indication: DEPRESSION

REACTIONS (3)
  - VENTRICULAR SEPTAL DEFECT [None]
  - PULMONARY VALVE STENOSIS [None]
  - DRUG EXPOSURE DURING PREGNANCY [None]
